FAERS Safety Report 7650903-X (Version None)
Quarter: 2011Q3

REPORT INFORMATION
  Report Type: 
  Country: None (occurrence: None)
  Receive Date: 20110802
  Receipt Date: 20110718
  Transmission Date: 20111222
  Serious: Yes (Hospitalization)
  Sender: FDA-Public Use
  Company Number: GB-WATSON-2011-11070

PATIENT
  Age: 78 Year
  Sex: Male

DRUGS (11)
  1. CLARITHROMYCIN [Suspect]
     Indication: OSTEOMYELITIS
     Dosage: 500 MG, BID
     Route: 048
  2. ATORVASTATIN [Suspect]
     Indication: PRODUCT USED FOR UNKNOWN INDICATION
     Dosage: 10 MG, DAILY
     Route: 048
  3. SODIUM FUSIDAT [Suspect]
     Indication: OSTEOMYELITIS
     Dosage: 500 MG, TID
     Route: 048
  4. BISOPROLOL FUMARATE [Concomitant]
     Indication: MYOCARDIAL ISCHAEMIA
     Dosage: 2.5 MG, DAILY
     Route: 048
  5. NOVOMIX                            /01475801/ [Concomitant]
     Indication: PRODUCT USED FOR UNKNOWN INDICATION
     Dosage: 34 IU, DAILY
     Route: 058
  6. ATORVASTATIN [Suspect]
     Indication: MYOCARDIAL ISCHAEMIA
     Dosage: 10 MG, DAILY
     Route: 048
     Dates: start: 20090101, end: 20110606
  7. LACTULOSE [Concomitant]
     Indication: PRODUCT USED FOR UNKNOWN INDICATION
     Dosage: 15 ML, BID
     Route: 048
  8. FUROSEMIDE [Concomitant]
     Indication: CARDIAC FAILURE CONGESTIVE
     Dosage: 40 MG, DAILY
     Route: 048
  9. CLARITHROMYCIN [Suspect]
     Indication: ISCHAEMIC ULCER
     Dosage: 500 MG, BID
     Route: 048
     Dates: start: 20090801, end: 20110606
  10. SODIUM FUSIDAT [Suspect]
     Indication: ISCHAEMIC ULCER
     Dosage: 500 MG, TID
     Route: 048
     Dates: start: 20090901, end: 20110605
  11. WARFARIN SODIUM [Concomitant]
     Indication: ATRIAL FIBRILLATION
     Dosage: UNK
     Route: 048

REACTIONS (3)
  - RHABDOMYOLYSIS [None]
  - RENAL FAILURE ACUTE [None]
  - MUSCULAR WEAKNESS [None]
